FAERS Safety Report 4496292-3 (Version None)
Quarter: 2004Q4

REPORT INFORMATION
  Report Type: 
  Country: None (occurrence: None)
  Receive Date: 20041108
  Receipt Date: 20041108
  Transmission Date: 20050328
  Serious: Yes (Life-Threatening)
  Sender: FDA-Public Use
  Company Number: None

PATIENT
  Age: 88 Year
  Sex: Female
  Weight: 81.6475 kg

DRUGS (1)
  1. AVINZA [Suspect]
     Indication: PAIN
     Dates: start: 20041027, end: 20041027

REACTIONS (6)
  - ASTHENIA [None]
  - DYSPNOEA [None]
  - HEADACHE [None]
  - HEART RATE DECREASED [None]
  - NAUSEA [None]
  - PALLOR [None]
